FAERS Safety Report 8384826-8 (Version None)
Quarter: 2012Q2

REPORT INFORMATION
  Report Type: 
  Country: None (occurrence: None)
  Receive Date: 20120524
  Receipt Date: 20120510
  Transmission Date: 20120825
  Serious: Yes (Hospitalization)
  Sender: FDA-Public Use
  Company Number: JP-B.I. PHARMACEUTICALS,INC./RIDGEFIELD-2012-BP-06400NB

PATIENT
  Sex: Female
  Weight: 40 kg

DRUGS (11)
  1. ASPIRIN [Concomitant]
     Indication: CORONARY ANGIOPLASTY
     Dosage: 100 MG
     Route: 048
     Dates: start: 20120327
  2. FLENIED [Suspect]
     Indication: ANGINA PECTORIS
     Dosage: 200 MG
     Route: 048
     Dates: start: 20120327, end: 20120404
  3. LOSARTAN POTASSIUM AND HYDROCHLOROTHIAZIDE [Concomitant]
     Indication: HYPERTENSION
     Route: 048
     Dates: start: 20120327
  4. HALOPERIDOL [Concomitant]
     Dosage: 0.75 MG
     Route: 048
     Dates: start: 20120327
  5. SODIUM BICARBONATE TARTRATE [Concomitant]
     Indication: RENAL FAILURE CHRONIC
     Dosage: 4 G
     Route: 048
     Dates: start: 20120327
  6. TRAZENTA [Suspect]
     Indication: DIABETES MELLITUS
     Dosage: 5 MG
     Route: 048
     Dates: start: 20120330, end: 20120404
  7. ZOPICOOL [Concomitant]
     Dosage: 5 MG
     Route: 048
     Dates: start: 20120327
  8. DOXAZOSIN MESYLATE [Concomitant]
     Indication: HYPERTENSION
     Dosage: 2 MG
     Route: 048
     Dates: start: 20120327
  9. ADALAT CC [Concomitant]
     Indication: HYPERTENSION
     Dosage: 60 MG
     Route: 048
     Dates: start: 20120327
  10. FAMOTIDINE D [Concomitant]
     Dosage: 20 MG
     Route: 048
     Dates: start: 20120327
  11. ZETIA [Concomitant]
     Indication: HYPERLIPIDAEMIA
     Dosage: 10 MG
     Route: 048
     Dates: start: 20120327

REACTIONS (2)
  - CARDIAC FAILURE CONGESTIVE [None]
  - RENAL FAILURE [None]
